FAERS Safety Report 9404600 (Version 1)
Quarter: 2013Q3

REPORT INFORMATION
  Report Type: Spontaneous
  Country: IN (occurrence: IN)
  Receive Date: 20130717
  Receipt Date: 20130717
  Transmission Date: 20140515
  Serious: Yes (Hospitalization)
  Sender: FDA-Public Use
  Company Number: IN-PFIZER INC-2013203876

PATIENT
  Age: 25 Year
  Sex: Female
  Weight: 60 kg

DRUGS (5)
  1. EPINEPHRINE [Suspect]
     Dosage: 1 MG
  2. GLYCOPYRROLATE [Concomitant]
     Dosage: 0.2 MG
  3. PENTAZOCINE [Concomitant]
     Dosage: 30MG
  4. PROMETHAZINE [Concomitant]
     Dosage: 25MG
     Route: 030
  5. LIGNOCAINE [Concomitant]
     Indication: LOCAL ANAESTHESIA
     Dosage: 20 ML OF 2%

REACTIONS (8)
  - Restlessness [Unknown]
  - Tachycardia [Recovered/Resolved]
  - Hypertension [Recovering/Resolving]
  - Headache [Recovered/Resolved]
  - Chest pain [Recovered/Resolved]
  - Overdose [Unknown]
  - Electrocardiogram ST segment depression [Recovered/Resolved]
  - Toxicity to various agents [Unknown]
